FAERS Safety Report 9787639 (Version 1)
Quarter: 2013Q4

REPORT INFORMATION
  Report Type: Spontaneous
  Country: GB (occurrence: None)
  Receive Date: 20131226
  Receipt Date: 20131226
  Transmission Date: 20140711
  Serious: Yes (Hospitalization)
  Sender: FDA-Public Use
  Company Number: FK201305388

PATIENT
  Age: 4 Year
  Sex: Female
  Weight: 19 kg

DRUGS (8)
  1. CEFTRIAXON (MANUFACTURER UNKNOWN) (CEFTRIAXON-DINATRIUM) (CEFTRIAXON-DINATRIUM) [Suspect]
     Indication: BACTERAEMIA
     Dosage: 2 IN 1 D (NOT OTHERWISE SPECIFIED)
     Route: 042
     Dates: start: 20131101, end: 20131105
  2. DEPAKINE CHRONO [Suspect]
     Indication: EPILEPSY
     Route: 048
     Dates: start: 20131010, end: 20131113
  3. DIFETOIN [Suspect]
     Indication: EPILEPSY
     Route: 048
     Dates: start: 20131016, end: 20131114
  4. RIVOTRIL [Suspect]
     Indication: EPILEPSY
     Route: 048
     Dates: start: 20131018
  5. MEDROL [Suspect]
     Indication: PRODUCT USED FOR UNKNOWN INDICATION
     Route: 048
     Dates: start: 20131028
  6. SOLU-MEDROL [Concomitant]
  7. VIROLEX [Concomitant]
  8. AZITROMICIN [Concomitant]

REACTIONS (11)
  - Eosinophil percentage increased [None]
  - Rash maculo-papular [None]
  - Aphthous stomatitis [None]
  - Genital ulceration [None]
  - Eyelid oedema [None]
  - Lip oedema [None]
  - Pyrexia [None]
  - Alanine aminotransferase increased [None]
  - Aspartate aminotransferase increased [None]
  - Gamma-glutamyltransferase increased [None]
  - Blood lactate dehydrogenase increased [None]
